FAERS Safety Report 6506778-5 (Version None)
Quarter: 2009Q4

REPORT INFORMATION
  Report Type: 
  Country: None (occurrence: None)
  Receive Date: 20091221
  Receipt Date: 20091022
  Transmission Date: 20100525
  Serious: Yes (Hospitalization, Other)
  Sender: FDA-Public Use
  Company Number: US-SANOFI-AVENTIS-200812498US

PATIENT
  Age: 59 Year
  Sex: Male

DRUGS (6)
  1. ENOXAPARIN SODIUM [Suspect]
     Route: 051
     Dates: start: 20080403, end: 20080411
  2. PERCOCET [Concomitant]
     Dosage: DOSE AS USED: UNK
  3. VITAMIN B-12 [Concomitant]
     Route: 051
  4. CHONDROITIN SULFATE/GLUCOSAMINE HYDROCHLORIDE [Concomitant]
     Dosage: DOSE AS USED: UNK
  5. MULTI-VITAMINS [Concomitant]
     Dosage: DOSE AS USED: UNK
  6. XANAX [Concomitant]
     Dosage: DOSE AS USED: UNK

REACTIONS (14)
  - BODY TEMPERATURE INCREASED [None]
  - DRUG INEFFECTIVE [None]
  - DYSPNOEA EXERTIONAL [None]
  - FATIGUE [None]
  - HYPERHIDROSIS [None]
  - INJECTION SITE ERYTHEMA [None]
  - INJECTION SITE HYPERSENSITIVITY [None]
  - INJECTION SITE INFECTION [None]
  - INJECTION SITE NECROSIS [None]
  - INJECTION SITE PAIN [None]
  - INJECTION SITE REACTION [None]
  - PULMONARY EMBOLISM [None]
  - PULMONARY INFARCTION [None]
  - TACHYCARDIA [None]
